FAERS Safety Report 11377140 (Version 1)
Quarter: 2015Q3

REPORT INFORMATION
  Report Type: Spontaneous
  Country: US (occurrence: US)
  Receive Date: 20150813
  Receipt Date: 20150813
  Transmission Date: 20151125
  Serious: No
  Sender: FDA-Public Use
  Company Number: US-GALDERMA-US14002538

PATIENT
  Sex: Female

DRUGS (2)
  1. METROGEL [Suspect]
     Active Substance: METRONIDAZOLE
     Indication: ROSACEA
     Dosage: 1%
     Route: 061
  2. CETAPHIL [Suspect]
     Active Substance: AVOBENZONE\OCTOCRYLENE\TRICLOSAN
     Indication: THERAPEUTIC SKIN CARE TOPICAL
     Route: 061

REACTIONS (1)
  - Rash [Unknown]
